FAERS Safety Report 25673348 (Version 1)
Quarter: 2025Q3

REPORT INFORMATION
  Report Type: Spontaneous
  Country: US (occurrence: US)
  Receive Date: 20250813
  Receipt Date: 20250813
  Transmission Date: 20251020
  Serious: Yes (Other)
  Sender: JOHNSON AND JOHNSON
  Company Number: US-JNJFOC-20250807066

PATIENT
  Sex: Female

DRUGS (1)
  1. TOPAMAX [Suspect]
     Active Substance: TOPIRAMATE
     Indication: Epilepsy
     Route: 048
     Dates: start: 2012

REACTIONS (5)
  - Petit mal epilepsy [Recovered/Resolved]
  - Hypohidrosis [Unknown]
  - Diarrhoea [Unknown]
  - Body temperature increased [Unknown]
  - Underdose [Unknown]
